FAERS Safety Report 6843817-6 (Version None)
Quarter: 2010Q3

REPORT INFORMATION
  Report Type: 
  Country: None (occurrence: None)
  Receive Date: 20100715
  Receipt Date: 20100701
  Transmission Date: 20110219
  Serious: Yes (Other)
  Sender: FDA-Public Use
  Company Number: PHHY2010JP41310

PATIENT
  Age: 73 Year
  Sex: Female

DRUGS (1)
  1. ZOMETA [Suspect]
     Indication: METASTASES TO BONE
     Dosage: UNK
     Route: 041
     Dates: start: 20060601, end: 20070101

REACTIONS (6)
  - IMPAIRED HEALING [None]
  - OSTEONECROSIS OF JAW [None]
  - PARAESTHESIA ORAL [None]
  - PERIODONTAL DISEASE [None]
  - SECONDARY SEQUESTRUM [None]
  - TOOTH EXTRACTION [None]
